FAERS Safety Report 13746021 (Version 5)
Quarter: 2018Q3

REPORT INFORMATION
  Report Type: Spontaneous
  Country: US (occurrence: US)
  Receive Date: 20170712
  Receipt Date: 20180824
  Transmission Date: 20181010
  Serious: Yes (Hospitalization, Other)
  Sender: FDA-Public Use
  Company Number: US-PFIZER INC-2017299476

PATIENT
  Age: 51 Year
  Sex: Female
  Weight: 82 kg

DRUGS (4)
  1. IBRANCE [Suspect]
     Active Substance: PALBOCICLIB
     Dosage: 100 MG, CYCLIC (D 1?21 Q28 DAYS)
     Route: 048
     Dates: end: 201808
  2. IBRANCE [Suspect]
     Active Substance: PALBOCICLIB
     Indication: BREAST CANCER METASTATIC
     Dosage: 100 MG, CYCLIC (D 1?21 EVERY 28 DAYS)
     Route: 048
     Dates: start: 20170418
  3. IBRANCE [Suspect]
     Active Substance: PALBOCICLIB
     Dosage: 100 MG, CYCLIC (D 1?21 Q28 DAYS)
     Route: 048
     Dates: start: 20170418
  4. IBRANCE [Suspect]
     Active Substance: PALBOCICLIB
     Dosage: 100 MG, CYCLIC (D 1?21 Q28 DAYS)
     Route: 048
     Dates: start: 20170418

REACTIONS (8)
  - Neoplasm progression [Unknown]
  - Hypersensitivity [Unknown]
  - Dyspnoea [Unknown]
  - White blood cell count decreased [Unknown]
  - Dyspnoea exertional [Unknown]
  - Chest discomfort [Unknown]
  - Pulmonary oedema [Unknown]
  - Nasal congestion [Unknown]

NARRATIVE: CASE EVENT DATE: 2017
